FAERS Safety Report 13051736 (Version 3)
Quarter: 2017Q1

REPORT INFORMATION
  Report Type: Other
  Country: FR (occurrence: FR)
  Receive Date: 20161221
  Receipt Date: 20170116
  Transmission Date: 20170428
  Serious: Yes (Hospitalization, Other)
  Sender: FDA-Public Use
  Company Number: FR-ALEXION PHARMACEUTICALS INC.-A201609952

PATIENT
  Age: 48 Year
  Sex: Female

DRUGS (5)
  1. SOLIRIS [Suspect]
     Active Substance: ECULIZUMAB
     Dosage: 200 MG, EVERY 15 DAYS
     Route: 042
     Dates: start: 201406
  2. SOLIRIS [Suspect]
     Active Substance: ECULIZUMAB
     Dosage: 1200 MG,Q2W
     Route: 042
  3. ARANESP [Suspect]
     Active Substance: DARBEPOETIN ALFA
     Indication: HAEMOLYTIC ANAEMIA
     Dosage: 300 ?G, QW
     Route: 065
     Dates: start: 20150125
  4. SOLIRIS [Suspect]
     Active Substance: ECULIZUMAB
     Indication: PAROXYSMAL NOCTURNAL HAEMOGLOBINURIA
     Dosage: UNK
     Route: 042
     Dates: start: 201404
  5. XARELTO [Suspect]
     Active Substance: RIVAROXABAN
     Indication: THROMBOCYTOPENIA
     Dosage: 20 MG, QD
     Route: 048

REACTIONS (8)
  - Myocardial fibrosis [Unknown]
  - Chest pain [Unknown]
  - Dyspnoea [Unknown]
  - Tinnitus [Unknown]
  - Headache [Unknown]
  - Ejection fraction decreased [Unknown]
  - Congestive cardiomyopathy [Unknown]
  - Incorrect dose administered [Not Recovered/Not Resolved]

NARRATIVE: CASE EVENT DATE: 201406
